FAERS Safety Report 17505566 (Version 2)
Quarter: 2020Q1

REPORT INFORMATION
  Report Type: Report from Study
  Country: US (occurrence: US)
  Receive Date: 20200305
  Receipt Date: 20200331
  Transmission Date: 20200409
  Serious: Yes (Hospitalization)
  Sender: FDA-Public Use
  Company Number: US-TEVA-2020-US-1193542

PATIENT
  Sex: Female

DRUGS (3)
  1. DECADRON [Concomitant]
     Active Substance: DEXAMETHASONE
     Indication: PROPHYLAXIS
     Dosage: RECEIVED INTRA-OPERATIVELY
     Route: 042
  2. METHYLPREDNISOLONE. [Suspect]
     Active Substance: METHYLPREDNISOLONE
     Dosage: DURING THE PROCEDURE, METHYLPREDNISOLONE 80MG WAS SOAKED INTO A MORCELLISED COLLAGEN SPONGE [GELFOAM
     Route: 050
  3. FAMOTIDINE. [Concomitant]
     Active Substance: FAMOTIDINE
     Indication: PROPHYLAXIS
     Dosage: RECEIVED INTRA-OPERATIVELY
     Route: 042

REACTIONS (5)
  - Dysphagia [Recovering/Resolving]
  - Oesophageal rupture [Recovering/Resolving]
  - Postoperative wound infection [Recovering/Resolving]
  - Pharyngeal abscess [Recovering/Resolving]
  - Impaired healing [Recovering/Resolving]
